FAERS Safety Report 8213433-2 (Version None)
Quarter: 2012Q1

REPORT INFORMATION
  Report Type: 
  Country: None (occurrence: None)
  Receive Date: 20120315
  Receipt Date: 20120307
  Transmission Date: 20120608
  Serious: Yes (Hospitalization)
  Sender: FDA-Public Use
  Company Number: PHHO2009RU12062

PATIENT
  Sex: Female
  Weight: 56 kg

DRUGS (5)
  1. TACROLIMUS [Suspect]
     Dosage: 5 MG / 24 H
     Route: 048
     Dates: start: 20090828
  2. TACROLIMUS [Suspect]
     Dosage: 7 MG / 24 H
     Route: 048
     Dates: start: 20090930
  3. MEDROL [Concomitant]
     Indication: LIVER TRANSPLANT
  4. EVEROLIMUS [Suspect]
     Indication: LIVER TRANSPLANT
     Dosage: 1.5 MG, BID
     Route: 048
     Dates: start: 20090706, end: 20091005
  5. TACROLIMUS [Suspect]
     Indication: LIVER TRANSPLANT
     Dosage: 2 MG, QD
     Route: 048
     Dates: start: 20090610

REACTIONS (6)
  - THROMBOCYTOPENIA [None]
  - LIVER TRANSPLANT REJECTION [None]
  - TOXICITY TO VARIOUS AGENTS [None]
  - DRUG INEFFECTIVE [None]
  - ALANINE AMINOTRANSFERASE INCREASED [None]
  - ASPARTATE AMINOTRANSFERASE INCREASED [None]
